FAERS Safety Report 7366810-6 (Version None)
Quarter: 2011Q1

REPORT INFORMATION
  Report Type: 
  Country: None (occurrence: None)
  Receive Date: 20110322
  Receipt Date: 20110311
  Transmission Date: 20110831
  Serious: Yes (Disabling, Other)
  Sender: FDA-Public Use
  Company Number: FR-ASTRAZENECA-2011SE05476

PATIENT
  Age: 25977 Day
  Sex: Female
  Weight: 55 kg

DRUGS (1)
  1. ARIMIDEX [Suspect]
     Indication: BREAST CANCER
     Route: 048
     Dates: start: 20100601, end: 20110121

REACTIONS (3)
  - BONE DENSITY DECREASED [None]
  - MYALGIA [None]
  - TENDON PAIN [None]
